FAERS Safety Report 6968661-0 (Version None)
Quarter: 2010Q3

REPORT INFORMATION
  Report Type: 
  Country: None (occurrence: None)
  Receive Date: 20100907
  Receipt Date: 20100830
  Transmission Date: 20110219
  Serious: Yes (Other)
  Sender: FDA-Public Use
  Company Number: DE-AMGEN-KDL416373

PATIENT
  Sex: Female
  Weight: 84 kg

DRUGS (3)
  1. NEULASTA [Suspect]
     Indication: CHEMOTHERAPY
     Dates: start: 20100418
  2. CIPROFLOXACIN [Concomitant]
     Route: 048
     Dates: start: 20100329
  3. EMEND [Concomitant]

REACTIONS (2)
  - THERAPEUTIC RESPONSE DECREASED [None]
  - WHITE BLOOD CELL COUNT DECREASED [None]
